FAERS Safety Report 18282429 (Version 1)
Quarter: 2020Q3

REPORT INFORMATION
  Report Type: Spontaneous
  Country: GB (occurrence: GB)
  Receive Date: 20200918
  Receipt Date: 20200918
  Transmission Date: 20201103
  Serious: Yes (Hospitalization)
  Sender: FDA-Public Use
  Company Number: GB-TEVA-2020-GB-1830383

PATIENT
  Age: 82 Year
  Sex: Male

DRUGS (9)
  1. LANSOPRAZOLE. [Concomitant]
     Active Substance: LANSOPRAZOLE
     Dosage: 30 MILLIGRAM DAILY; EACH MORNING
  2. LORAZEPAM. [Suspect]
     Active Substance: LORAZEPAM
     Indication: AGITATION
     Dosage: UP TO 4 TIMES A DAY  (0.5 MG)
  3. DECAPEPTYL SR [Concomitant]
     Active Substance: TRIPTORELIN
     Dosage: 11.25 MG
  4. APIXABAN [Concomitant]
     Active Substance: APIXABAN
     Dosage: 5 MG
  5. ACIDEX [Concomitant]
     Active Substance: CALCIUM CARBONATE\SODIUM ALGINATE\SODIUM BICARBONATE
  6. ATORVASTATIN [Concomitant]
     Active Substance: ATORVASTATIN
     Dosage: 40 MG
  7. TAMSULOSIN [Suspect]
     Active Substance: TAMSULOSIN
     Dosage: 400 MICROGRAM DAILY; MORNING
  8. CLOPIDOGREL [Concomitant]
     Active Substance: CLOPIDOGREL BISULFATE
     Dosage: 75 MG
  9. LACTULOSE. [Concomitant]
     Active Substance: LACTULOSE
     Dosage: 3.1?3.7G/5ML THREE 5ML SPOONFULS TO BE TAKEN TWICE A DAY AS NECESSARY  (UNIT DOSE: 15 ML)
     Route: 048

REACTIONS (3)
  - Blood pressure decreased [Unknown]
  - Delirium [Recovered/Resolved]
  - Confusional state [Unknown]
